FAERS Safety Report 7658064-8 (Version None)
Quarter: 2011Q3

REPORT INFORMATION
  Report Type: 
  Country: None (occurrence: None)
  Receive Date: 20110805
  Receipt Date: 20110728
  Transmission Date: 20111222
  Serious: Yes (Other)
  Sender: FDA-Public Use
  Company Number: VE-AMGEN-VENSP2011037573

PATIENT
  Age: 59 Year
  Sex: Female
  Weight: 65 kg

DRUGS (9)
  1. PLAQUINOL [Concomitant]
  2. FLOTAC                             /00372301/ [Concomitant]
     Dosage: 75 MG, UNK
  3. CALCIUM CARBONATE [Concomitant]
  4. ARAVA [Concomitant]
  5. LANSOPRAZOL [Concomitant]
  6. ACETAMINOPHEN [Concomitant]
  7. ALENDRONATE SODIUM [Concomitant]
     Dosage: 760 MG, UNK
  8. MANIDON [Concomitant]
  9. ENBREL [Suspect]
     Indication: RHEUMATOID ARTHRITIS
     Dosage: UNK

REACTIONS (2)
  - MALIGNANT NEOPLASM OF AMPULLA OF VATER [None]
  - METASTASES TO LIVER [None]
